FAERS Safety Report 10626582 (Version 2)
Quarter: 2015Q1

REPORT INFORMATION
  Report Type: Spontaneous
  Country: US (occurrence: US)
  Receive Date: 20141204
  Receipt Date: 20150126
  Transmission Date: 20150720
  Serious: Yes (Other)
  Sender: FDA-Public Use
  Company Number: US-TEVA-526839USA

PATIENT
  Age: 27 Year
  Sex: Female
  Weight: 58.11 kg

DRUGS (1)
  1. PARAGARD T 380A [Suspect]
     Active Substance: COPPER
     Indication: CONTRACEPTION
     Route: 015
     Dates: start: 20141106, end: 20141125

REACTIONS (4)
  - Abdominal pain [Recovered/Resolved]
  - Scratch [Recovered/Resolved]
  - Device dislocation [Recovered/Resolved]
  - Discomfort [Recovered/Resolved]

NARRATIVE: CASE EVENT DATE: 20141119
